FAERS Safety Report 17226039 (Version 2)
Quarter: 2020Q1

REPORT INFORMATION
  Report Type: Spontaneous
  Country: US (occurrence: US)
  Receive Date: 20200102
  Receipt Date: 20200311
  Transmission Date: 20200409
  Serious: Yes (Other)
  Sender: FDA-Public Use
  Company Number: US-009507513-1912USA012239

PATIENT
  Age: 65 Year
  Sex: Male

DRUGS (7)
  1. URSODIOL. [Concomitant]
     Active Substance: URSODIOL
  2. TICE BCG [Suspect]
     Active Substance: BACILLUS CALMETTE-GUERIN SUBSTRAIN TICE LIVE ANTIGEN
     Indication: BLADDER CANCER
     Dosage: INITIAL 6 TREATMENTS. ROUTE OF ADMINISTRATION: TUBE UP THE BLADDER
     Route: 043
     Dates: start: 201903, end: 201904
  3. TICE BCG [Suspect]
     Active Substance: BACILLUS CALMETTE-GUERIN SUBSTRAIN TICE LIVE ANTIGEN
     Dosage: SECOND MAINTENANCE DOSE.  ROUTE OF ADMINISTRATION: TUBE UP THE BLADDER
     Route: 043
     Dates: start: 20190920, end: 20190920
  4. TICE BCG [Suspect]
     Active Substance: BACILLUS CALMETTE-GUERIN SUBSTRAIN TICE LIVE ANTIGEN
     Dosage: ROUTE OF ADMINISTRATION: TUBE UP THE BLADDER
     Route: 043
     Dates: start: 20191007, end: 20191007
  5. TICE BCG [Suspect]
     Active Substance: BACILLUS CALMETTE-GUERIN SUBSTRAIN TICE LIVE ANTIGEN
     Dosage: MAINTENANCE DOSE.  ROUTE OF ADMINISTRATION: TUBE UP THE BLADDER
     Route: 043
     Dates: start: 201909, end: 201909
  6. FLOMAX [Concomitant]
     Active Substance: TAMSULOSIN HYDROCHLORIDE
     Indication: PROSTATOMEGALY
  7. TICE BCG [Suspect]
     Active Substance: BACILLUS CALMETTE-GUERIN SUBSTRAIN TICE LIVE ANTIGEN
     Dosage: ROUTE OF ADMINISTRATION: TUBE UP THE BLADDER
     Route: 043
     Dates: start: 20200120

REACTIONS (10)
  - Incorrect product administration duration [Unknown]
  - Penile haemorrhage [Recovered/Resolved]
  - Penile pain [Recovered/Resolved]
  - Micturition urgency [Recovered/Resolved]
  - Nocturia [Unknown]
  - Dysuria [Not Recovered/Not Resolved]
  - Product dose omission [Unknown]
  - Insomnia [Recovered/Resolved]
  - Product availability issue [Unknown]
  - Penile burning sensation [Recovered/Resolved]

NARRATIVE: CASE EVENT DATE: 2019
